FAERS Safety Report 9431808 (Version 3)
Quarter: 2013Q4

REPORT INFORMATION
  Report Type: Spontaneous
  Country: US (occurrence: None)
  Receive Date: 20130726
  Receipt Date: 20131104
  Transmission Date: 20140711
  Serious: Yes (Life-Threatening, Hospitalization)
  Sender: FDA-Public Use
  Company Number: 2013P1012620

PATIENT
  Age: 30 Year
  Sex: Female
  Weight: 63.5 kg

DRUGS (8)
  1. CORTISONE ACETATE [Suspect]
     Indication: ADDISON^S DISEASE
     Route: 048
     Dates: start: 1996, end: 201210
  2. HYDROCORTISONE [Suspect]
     Indication: ADDISON^S DISEASE
     Dates: start: 201208, end: 201210
  3. BUTALBITAL [Suspect]
     Indication: MIGRAINE
     Dosage: 2 TABLETS
  4. SULFA [Suspect]
     Dates: end: 2005
  5. IMITREX [Suspect]
     Indication: MIGRAINE
  6. ATIVAN [Suspect]
     Indication: SUICIDAL IDEATION
  7. ATIVAN [Suspect]
     Indication: PANIC ATTACK
  8. MORPHINE [Suspect]

REACTIONS (22)
  - Premature menopause [None]
  - Vaginal haemorrhage [None]
  - Drug hypersensitivity [None]
  - Suicidal ideation [None]
  - Malaise [None]
  - Hysterectomy [None]
  - Thyroid neoplasm [None]
  - Coeliac disease [None]
  - Depression [None]
  - Panic attack [None]
  - Drug ineffective [None]
  - Osteonecrosis [None]
  - Influenza like illness [None]
  - Withdrawal syndrome [None]
  - Decreased appetite [None]
  - Weight decreased [None]
  - Stress at work [None]
  - Anger [None]
  - Middle insomnia [None]
  - Diarrhoea [None]
  - Pain [None]
  - Feeling abnormal [None]
